FAERS Safety Report 15987500 (Version 1)
Quarter: 2019Q1

REPORT INFORMATION
  Report Type: Spontaneous
  Country: IT (occurrence: IT)
  Receive Date: 20190220
  Receipt Date: 20190220
  Transmission Date: 20190418
  Serious: Yes (Hospitalization)
  Sender: FDA-Public Use
  Company Number: IT-LUNDBECK-DKLU2060824

PATIENT
  Age: 38 Year
  Sex: Female

DRUGS (3)
  1. DEPAKINE CHRONO [Suspect]
     Active Substance: VALPROATE SODIUM
     Indication: EPILEPSY CONGENITAL
     Route: 048
     Dates: start: 20170101
  2. METHOTREXATE. [Concomitant]
     Active Substance: METHOTREXATE
     Indication: PSORIASIS
     Route: 065
     Dates: start: 20170101
  3. FRISIUM [Suspect]
     Active Substance: CLOBAZAM
     Indication: ANXIETY
     Route: 048
     Dates: start: 20170101, end: 20190130

REACTIONS (4)
  - Confusional state [Unknown]
  - Hyperammonaemia [Unknown]
  - Bradyphrenia [Unknown]
  - Asthenia [Unknown]

NARRATIVE: CASE EVENT DATE: 20190130
